FAERS Safety Report 8337608-7 (Version None)
Quarter: 2012Q2

REPORT INFORMATION
  Report Type: 
  Country: None (occurrence: None)
  Receive Date: 20120504
  Receipt Date: 20110912
  Transmission Date: 20120825
  Serious: No
  Sender: FDA-Public Use
  Company Number: US-TEVA-2011004779

PATIENT
  Sex: Male
  Weight: 74.91 kg

DRUGS (7)
  1. OMNARIS [Concomitant]
     Dates: start: 20110101
  2. NUVIGIL [Suspect]
     Indication: SLEEP APNOEA SYNDROME
     Dosage: 250 MILLIGRAM;
     Route: 048
     Dates: start: 20110401
  3. NUVIGIL [Suspect]
     Route: 048
     Dates: end: 20110905
  4. LISINOPRIL [Concomitant]
     Dates: start: 20100101
  5. TERAZOSIN HCL [Concomitant]
     Dates: start: 20080101
  6. LIALDA [Concomitant]
     Dates: start: 20100101
  7. ASTELIN [Concomitant]
     Dates: start: 20090101

REACTIONS (2)
  - TERMINAL INSOMNIA [None]
  - INTENTIONAL DRUG MISUSE [None]
